FAERS Safety Report 11880507 (Version 3)
Quarter: 2016Q2

REPORT INFORMATION
  Report Type: Spontaneous
  Country: US (occurrence: US)
  Receive Date: 20151230
  Receipt Date: 20160401
  Transmission Date: 20160815
  Serious: Yes (Disabling)
  Sender: FDA-Public Use
  Company Number: US-ASTRAZENECA-2012SE74504

PATIENT
  Age: 48 Year
  Sex: Female
  Weight: 81.6 kg

DRUGS (19)
  1. CLOTRIMAZOLE. [Concomitant]
     Active Substance: CLOTRIMAZOLE
  2. ZOLPIDEM [Concomitant]
     Active Substance: ZOLPIDEM\ZOLPIDEM TARTRATE
     Route: 048
  3. GABAPENTIN. [Concomitant]
     Active Substance: GABAPENTIN
  4. DALMANE [Concomitant]
     Active Substance: FLURAZEPAM HYDROCHLORIDE
  5. ACTOS [Concomitant]
     Active Substance: PIOGLITAZONE HYDROCHLORIDE
     Route: 048
  6. PAMELOR [Concomitant]
     Active Substance: NORTRIPTYLINE HYDROCHLORIDE
  7. CRESTOR [Suspect]
     Active Substance: ROSUVASTATIN CALCIUM
     Indication: BLOOD CHOLESTEROL INCREASED
     Route: 048
     Dates: start: 2004
  8. LEXAPRO [Concomitant]
     Active Substance: ESCITALOPRAM OXALATE
     Route: 048
  9. VICODIN [Concomitant]
     Active Substance: ACETAMINOPHEN\HYDROCODONE BITARTRATE
     Route: 065
  10. ATIVAN [Concomitant]
     Active Substance: LORAZEPAM
  11. LOPRESSOR [Concomitant]
     Active Substance: METOPROLOL TARTRATE
     Indication: DEPRESSION
     Dates: start: 2005, end: 2007
  12. NEXIUM [Concomitant]
     Active Substance: ESOMEPRAZOLE MAGNESIUM
     Route: 048
  13. A-HYDROCORT [Concomitant]
     Active Substance: HYDROCORTISONE SODIUM SUCCINATE
  14. RISPERDAL [Concomitant]
     Active Substance: RISPERIDONE
     Route: 065
  15. ESIDRIX [Concomitant]
     Active Substance: HYDROCHLOROTHIAZIDE
  16. CRESTOR [Suspect]
     Active Substance: ROSUVASTATIN CALCIUM
     Indication: BLOOD CHOLESTEROL INCREASED
     Route: 048
     Dates: start: 20090108
  17. CYMBALTA [Concomitant]
     Active Substance: DULOXETINE HYDROCHLORIDE
  18. TOPROL XL [Concomitant]
     Active Substance: METOPROLOL SUCCINATE
  19. METFORMIN HYDROCHLORIDE. [Concomitant]
     Active Substance: METFORMIN HYDROCHLORIDE
     Route: 048

REACTIONS (9)
  - Arrhythmia [Unknown]
  - Hypertension [Not Recovered/Not Resolved]
  - Angina pectoris [Unknown]
  - Type 2 diabetes mellitus [Not Recovered/Not Resolved]
  - Depression [Unknown]
  - Blood triglycerides increased [Not Recovered/Not Resolved]
  - Intervertebral disc protrusion [Unknown]
  - Coronary artery disease [Unknown]
  - Syncope [Unknown]

NARRATIVE: CASE EVENT DATE: 2004
